FAERS Safety Report 12636781 (Version 1)
Quarter: 2016Q3

REPORT INFORMATION
  Report Type: Spontaneous
  Country: GH (occurrence: GH)
  Receive Date: 20160809
  Receipt Date: 20160809
  Transmission Date: 20161109
  Serious: Yes (Other)
  Sender: FDA-Public Use
  Company Number: GH-ELI_LILLY_AND_COMPANY-GH201608003248

PATIENT
  Age: 35 Year
  Sex: Female

DRUGS (2)
  1. IRON SUCROSE [Concomitant]
     Active Substance: IRON SUCROSE
     Route: 042
  2. HUMULINE 30% REGULAR, 70% NPH [Suspect]
     Active Substance: INSULIN HUMAN
     Indication: PRODUCT USED FOR UNKNOWN INDICATION
     Dosage: UNK, UNKNOWN
     Route: 065

REACTIONS (1)
  - Palpitations [Unknown]
